FAERS Safety Report 4746341-X (Version None)
Quarter: 2005Q3

REPORT INFORMATION
  Report Type: 
  Country: None (occurrence: None)
  Receive Date: 20050815
  Receipt Date: 20050805
  Transmission Date: 20060218
  Serious: Yes (Other)
  Sender: FDA-Public Use
  Company Number: 2005-08-0259

PATIENT
  Age: 59 Year
  Sex: Female

DRUGS (2)
  1. INTRON A [Suspect]
     Indication: ALLERGIC GRANULOMATOUS ANGIITIS
     Dosage: 5 MIU TIW SUBCUTANEOUS
     Route: 058
     Dates: start: 19970101, end: 20010101
  2. PREDNISOLONE [Suspect]
     Indication: ALLERGIC GRANULOMATOUS ANGIITIS

REACTIONS (5)
  - CARDIAC DISORDER [None]
  - DISEASE RECURRENCE [None]
  - LEUKOENCEPHALOPATHY [None]
  - TRANSIENT PSYCHOSIS [None]
  - VASCULITIS [None]
